FAERS Safety Report 6052683-0 (Version None)
Quarter: 2009Q1

REPORT INFORMATION
  Report Type: 
  Country: None (occurrence: None)
  Receive Date: 20090127
  Receipt Date: 20090115
  Transmission Date: 20090719
  Serious: Yes (Hospitalization, Other)
  Sender: FDA-Public Use
  Company Number: US-PFIZER INC-2008049752

PATIENT
  Sex: Female
  Weight: 52 kg

DRUGS (11)
  1. SUNITINIB MALATE [Suspect]
     Indication: BREAST CANCER METASTATIC
     Dosage: 37.5 MG, 1X/DAY
     Route: 048
     Dates: start: 20080326, end: 20080624
  2. ACETYLSALICYLIC ACID SRT [Concomitant]
     Dosage: EVERY DAY
     Route: 048
     Dates: start: 20060104
  3. NORVASC [Concomitant]
     Dosage: ONCE DAILY
     Route: 048
     Dates: start: 20080525
  4. COZAAR [Concomitant]
     Dosage: BID
     Route: 048
     Dates: start: 20080418
  5. VITAMIN B-COMPLEX WITH VITAMIN C [Concomitant]
     Dosage: 2 TABLETS,QD
     Route: 048
     Dates: start: 20080418
  6. LUMIGAN [Concomitant]
     Dosage: 0.03 PCT,QD
     Route: 047
     Dates: start: 20071116
  7. MULTI-VITAMINS [Concomitant]
     Dosage: 1 TABLET,QD
     Route: 048
     Dates: start: 20060104
  8. CALTRATE [Concomitant]
     Dosage: 600/200,BID
     Route: 048
     Dates: start: 20050209
  9. ATENOLOL [Concomitant]
     Dosage: BID
     Route: 048
     Dates: start: 20050209
  10. MAGIC MOUTHWASH [Concomitant]
     Dosage: PRN
     Route: 048
     Dates: start: 20080525
  11. COSOPT [Concomitant]
     Dosage: 0.5 % - 2 %  / 2 DROPS,DAILY
     Route: 047
     Dates: start: 20080527

REACTIONS (3)
  - ATAXIA [None]
  - CONFUSIONAL STATE [None]
  - HYPERTENSION [None]
